FAERS Safety Report 11184655 (Version 1)
Quarter: 2015Q2

REPORT INFORMATION
  Report Type: Spontaneous
  Country: US (occurrence: US)
  Receive Date: 20150612
  Receipt Date: 20150612
  Transmission Date: 20150821
  Serious: Yes (Other)
  Sender: FDA-Public Use
  Company Number: US-GLAXOSMITHKLINE-US2015GSK081716

PATIENT
  Age: 48 Year
  Sex: Female

DRUGS (3)
  1. ZOFRAN [Suspect]
     Active Substance: ONDANSETRON HYDROCHLORIDE
     Indication: PRODUCT USED FOR UNKNOWN INDICATION
  2. TRANSDERM SCOP [Suspect]
     Active Substance: SCOPOLAMINE
     Indication: PROCEDURAL NAUSEA
     Dosage: UNK
     Route: 062
     Dates: start: 20141204, end: 20141210
  3. TRANSDERM SCOP [Suspect]
     Active Substance: SCOPOLAMINE
     Indication: PROCEDURAL VOMITING
     Dosage: UNK
     Dates: start: 20141228

REACTIONS (6)
  - Nausea [Recovering/Resolving]
  - Application site pain [Not Recovered/Not Resolved]
  - Postoperative wound complication [Recovering/Resolving]
  - Vomiting [Recovering/Resolving]
  - Drug ineffective [Unknown]
  - Postoperative hernia [Recovering/Resolving]

NARRATIVE: CASE EVENT DATE: 201412
